FAERS Safety Report 8777404 (Version 1)
Quarter: 2012Q4

REPORT INFORMATION
  Report Type: 
  Country: US (occurrence: US)
  Receive Date: 20120911
  Receipt Date: 20120911
  Transmission Date: 20130627
  Serious: Yes (Hospitalization)
  Sender: FDA-Public Use
  Company Number: US-BRISTOL-MYERS SQUIBB COMPANY-16917718

PATIENT
  Age: 78 Year
  Sex: Male

DRUGS (1)
  1. ORENCIA [Suspect]
     Dosage: Stopped 2 months ago
     Route: 042
     Dates: start: 201203, end: 2012

REACTIONS (1)
  - Renal disorder [Unknown]
